FAERS Safety Report 10056517 (Version 1)
Quarter: 2014Q2

REPORT INFORMATION
  Report Type: Spontaneous
  Country: US (occurrence: US)
  Receive Date: 20140403
  Receipt Date: 20140403
  Transmission Date: 20141212
  Serious: Yes (Other)
  Sender: FDA-Public Use
  Company Number: US-PFIZER INC-2014088666

PATIENT
  Age: 10 Year
  Sex: Male
  Weight: 25 kg

DRUGS (3)
  1. LIDOCAINE HCL [Suspect]
     Dosage: 2 ML OF 1% TOTAL
     Route: 042
     Dates: start: 19710504
  2. EPINEPHRINE [Suspect]
     Dosage: 1: 100,000, UNK
     Dates: start: 19710504
  3. METHOXYFLURANE [Suspect]
     Indication: ANAESTHESIA
     Dosage: UNK
     Dates: start: 19710504

REACTIONS (7)
  - Incorrect dose administered [Unknown]
  - Toxicity to various agents [Recovered/Resolved]
  - Sinus tachycardia [Recovered/Resolved]
  - Extrasystoles [Recovered/Resolved]
  - Acute pulmonary oedema [Recovered/Resolved]
  - Convulsion [Recovered/Resolved]
  - Myocardial ischaemia [Recovered/Resolved]
